FAERS Safety Report 4446468-6 (Version None)
Quarter: 2004Q3

REPORT INFORMATION
  Report Type: 
  Country: None (occurrence: None)
  Receive Date: 20040902
  Receipt Date: 20040818
  Transmission Date: 20050211
  Serious: Yes (Death)
  Sender: FDA-Public Use
  Company Number: DEU-2004-0000842

PATIENT
  Age: 20 Year
  Sex: Male

DRUGS (4)
  1. MORPHINE SULFATE [Suspect]
     Indication: DRUG USE FOR UNKNOWN INDICATION
     Dosage: 40 MG, INTRAVENOUS
     Route: 042
     Dates: start: 20040320
  2. OXAZEPAM [Suspect]
     Indication: DRUG USE FOR UNKNOWN INDICATION
     Dosage: ORAL
     Route: 048
     Dates: start: 20040320
  3. NORDAZEPAM [Suspect]
     Indication: DRUG USE FOR UNKNOWN INDICATION
  4. DIAZEPAM [Suspect]
     Indication: DRUG USE FOR UNKNOWN INDICATION

REACTIONS (7)
  - ACCIDENTAL OVERDOSE [None]
  - BRAIN OEDEMA [None]
  - DRUG INTERACTION [None]
  - MULTIPLE DRUG OVERDOSE [None]
  - POLYSUBSTANCE ABUSE [None]
  - PULMONARY OEDEMA [None]
  - VOMITING [None]
